FAERS Safety Report 4807634-0 (Version None)
Quarter: 2005Q4

REPORT INFORMATION
  Report Type: 
  Country: None (occurrence: None)
  Receive Date: 20051024
  Receipt Date: 20051011
  Transmission Date: 20060501
  Serious: Yes (Hospitalization, Other)
  Sender: FDA-Public Use
  Company Number: 2005GB01979

PATIENT
  Age: 23614 Day

DRUGS (9)
  1. IRESSA [Suspect]
     Route: 048
     Dates: end: 20050915
  2. DEXAMETHASONE [Concomitant]
     Indication: DYSPNOEA
     Dates: start: 20050607
  3. THYROXINE [Concomitant]
     Dosage: LONG STANDING
  4. FELODIPINE [Concomitant]
     Indication: HYPERTENSION
     Dosage: LONG STANDING
  5. LISINOPRIL [Concomitant]
     Indication: HYPERTENSION
     Dosage: LONG STANDING
  6. DOXAZOSIN [Concomitant]
     Indication: HYPERTENSION
     Dosage: LONG STANDING
  7. BENDROFLUAZIDE [Concomitant]
     Indication: HYPERTENSION
     Dosage: LONG STANDING
  8. METFORMIN [Concomitant]
     Indication: DIABETES MELLITUS
     Dosage: LONG STANDING
  9. GLIMEPIRIDE [Concomitant]
     Indication: DIABETES MELLITUS
     Dosage: LONG STANDING

REACTIONS (1)
  - RENAL FAILURE ACUTE [None]
